FAERS Safety Report 4437553-3 (Version None)
Quarter: 2004Q3

REPORT INFORMATION
  Report Type: 
  Country: None (occurrence: None)
  Receive Date: 20040830
  Receipt Date: 20040830
  Transmission Date: 20050211
  Serious: Yes (Death)
  Sender: FDA-Public Use
  Company Number: None

PATIENT
  Age: 62 Year
  Sex: Female
  Weight: 54.4316 kg

DRUGS (5)
  1. REMICADE [Suspect]
     Indication: RHEUMATOID ARTHRITIS
     Dosage: ONE EVERY 6-8 IV
     Route: 042
     Dates: start: 20010601, end: 20030116
  2. FOSAMAX [Concomitant]
  3. FLONASE [Concomitant]
  4. METHOTREXATE [Concomitant]
  5. AMBIEN [Concomitant]

REACTIONS (8)
  - BALANCE DISORDER [None]
  - COORDINATION ABNORMAL [None]
  - DEEP VEIN THROMBOSIS [None]
  - EYE INJURY [None]
  - FALL [None]
  - GLIOBLASTOMA [None]
  - MOBILITY DECREASED [None]
  - MYOCARDIAL INFARCTION [None]
